FAERS Safety Report 14094046 (Version 2)
Quarter: 2017Q4

REPORT INFORMATION
  Report Type: Spontaneous
  Country: CH (occurrence: CH)
  Receive Date: 20171016
  Receipt Date: 20171109
  Transmission Date: 20180321
  Serious: Yes (Other)
  Sender: FDA-Public Use
  Company Number: CH-TEVA-814904ISR

PATIENT
  Age: 23 Year
  Sex: Female

DRUGS (2)
  1. SERALIN-MEPHA [Suspect]
     Active Substance: SERTRALINE HYDROCHLORIDE
     Dosage: ONGOING
     Route: 065
     Dates: start: 2017
  2. SERALIN-MEPHA [Suspect]
     Active Substance: SERTRALINE HYDROCHLORIDE
     Indication: PRODUCT USED FOR UNKNOWN INDICATION
     Dosage: STOPPED AND SWITCHED TO 50 MG
     Route: 065
     Dates: start: 2017

REACTIONS (4)
  - Extrasystoles [Unknown]
  - Cardiac disorder [Unknown]
  - Palpitations [Unknown]
  - Ventricular tachycardia [Unknown]

NARRATIVE: CASE EVENT DATE: 2017
